FAERS Safety Report 11223399 (Version 2)
Quarter: 2015Q3

REPORT INFORMATION
  Report Type: Spontaneous
  Country: IT (occurrence: IT)
  Receive Date: 20150627
  Receipt Date: 20150702
  Transmission Date: 20151125
  Serious: Yes (Other)
  Sender: FDA-Public Use
  Company Number: IT-TEVA-573095ISR

PATIENT
  Sex: Female

DRUGS (1)
  1. FLUOXETINA RATIOPHARM [Suspect]
     Active Substance: FLUOXETINE\FLUOXETINE HYDROCHLORIDE
     Dosage: 20 MILLIGRAM DAILY;

REACTIONS (2)
  - Secretion discharge [Unknown]
  - Rectal haemorrhage [Unknown]
